FAERS Safety Report 14693562 (Version 6)
Quarter: 2020Q1

REPORT INFORMATION
  Report Type: Report from Study
  Country: JP (occurrence: JP)
  Receive Date: 20180329
  Receipt Date: 20200219
  Transmission Date: 20200409
  Serious: Yes (Hospitalization, Other)
  Sender: FDA-Public Use
  Company Number: JP-ACTELION-A-CH2018-169663

PATIENT
  Age: 38 Year
  Sex: Female
  Weight: 39.1 kg

DRUGS (16)
  1. DIART [Concomitant]
     Active Substance: AZOSEMIDE
     Indication: HYPERTENSION
     Dosage: 30 MG, QD
     Route: 048
  2. TAKECAB [Concomitant]
     Active Substance: VONOPRAZAN FUMURATE
     Route: 048
  3. REBAMIPIDE [Concomitant]
     Active Substance: REBAMIPIDE
     Route: 048
  4. PREDNISOLONE. [Concomitant]
     Active Substance: PREDNISOLONE
     Indication: SCLERODERMA ASSOCIATED DIGITAL ULCER
     Dosage: 5 MG, QD
     Route: 048
  5. ACECOL [Concomitant]
     Active Substance: TEMOCAPRIL HYDROCHLORIDE
     Indication: HYPERTENSION
     Dosage: 2 MG, QD
     Route: 048
  6. NIFEDIPINE. [Concomitant]
     Active Substance: NIFEDIPINE
     Indication: HYPERTENSION
     Dosage: 20 MG, QD
     Route: 048
  7. CELECOX [Concomitant]
     Active Substance: CELECOXIB
     Indication: SCLERODERMA ASSOCIATED DIGITAL ULCER
     Dosage: 100 MG, BID
     Route: 048
  8. ANPLAG [Concomitant]
     Active Substance: SARPOGRELATE
     Indication: SCLERODERMA ASSOCIATED DIGITAL ULCER
     Dosage: 100 MG, TID
     Route: 048
  9. TOCOPHERYL NICOTINATE [Concomitant]
     Active Substance: TOCOPHERYL NICOTINATE, D-.ALPHA.
     Indication: SCLERODERMA ASSOCIATED DIGITAL ULCER
     Dosage: 200 MG, TID
     Route: 048
  10. ATELEC [Concomitant]
     Active Substance: CILNIDIPINE
     Route: 048
  11. BERASUS [Concomitant]
     Active Substance: BERAPROST SODIUM
  12. WARFARIN POTASSIUM [Concomitant]
     Active Substance: WARFARIN POTASSIUM
     Indication: SCLERODERMA ASSOCIATED DIGITAL ULCER
     Dosage: 2.5 MG, QD
     Route: 048
  13. BERAPROST SODIUM [Concomitant]
     Active Substance: BERAPROST SODIUM
     Indication: SCLERODERMA ASSOCIATED DIGITAL ULCER
     Dosage: 40 MCG, TID
     Route: 048
     Dates: start: 20161222, end: 20180316
  14. LANSOPRAZOLE. [Concomitant]
     Active Substance: LANSOPRAZOLE
     Indication: GASTROOESOPHAGEAL REFLUX DISEASE
     Dosage: 15 MG, QD
     Route: 048
  15. TRACLEER [Suspect]
     Active Substance: BOSENTAN
     Indication: SCLERODERMA ASSOCIATED DIGITAL ULCER
     Dosage: 62.5 MG, QD
     Route: 048
     Dates: start: 20161201, end: 20180319
  16. FENTOS [Concomitant]
     Active Substance: FENTANYL
     Indication: SCLERODERMA ASSOCIATED DIGITAL ULCER
     Dosage: 4 MG, QD
     Route: 003

REACTIONS (5)
  - Exposure during pregnancy [Unknown]
  - Premature labour [Recovered/Resolved]
  - Caesarean section [Unknown]
  - Premature separation of placenta [Recovered/Resolved]
  - Low birth weight baby [Recovered/Resolved]

NARRATIVE: CASE EVENT DATE: 20180309
